FAERS Safety Report 25881611 (Version 1)
Quarter: 2025Q4

REPORT INFORMATION
  Report Type: Spontaneous
  Country: US (occurrence: US)
  Receive Date: 20251005
  Receipt Date: 20251005
  Transmission Date: 20260118
  Serious: Yes (Hospitalization, Other)
  Sender: SANOFI AVENTIS
  Company Number: US-SA-2025SA293413

PATIENT
  Age: 54 Year
  Sex: Male

DRUGS (1)
  1. DUPIXENT [Suspect]
     Active Substance: DUPILUMAB
     Indication: Asthma
     Dosage: 300 MG, QOW
     Route: 058
     Dates: start: 202507, end: 202509

REACTIONS (2)
  - Pneumonia [Unknown]
  - Sepsis [Unknown]

NARRATIVE: CASE EVENT DATE: 20250101
